FAERS Safety Report 12255274 (Version 2)
Quarter: 2016Q2

REPORT INFORMATION
  Report Type: Spontaneous
  Country: CA (occurrence: CA)
  Receive Date: 20160412
  Receipt Date: 20160414
  Transmission Date: 20160815
  Serious: Yes (Other)
  Sender: FDA-Public Use
  Company Number: CA-AMGEN-CANSP2016044796

PATIENT
  Age: 65 Year
  Sex: Female

DRUGS (5)
  1. FOLIC ACID. [Concomitant]
     Active Substance: FOLIC ACID
     Dosage: UNK
  2. ASPIRIN                            /00002701/ [Concomitant]
     Active Substance: ASPIRIN
     Dosage: UNK
  3. METHOTREXATE [Concomitant]
     Active Substance: METHOTREXATE
     Dosage: UNK
  4. PREDNISONE. [Concomitant]
     Active Substance: PREDNISONE
     Dosage: 5 MG, DAILY
  5. ENBREL [Suspect]
     Active Substance: ETANERCEPT
     Indication: PRODUCT USED FOR UNKNOWN INDICATION
     Dosage: UNK
     Route: 065
     Dates: end: 20160402

REACTIONS (8)
  - Rheumatoid arthritis [Unknown]
  - Drug ineffective [Unknown]
  - Wheelchair user [Unknown]
  - Cerebrovascular accident [Unknown]
  - Arthropathy [Unknown]
  - Joint swelling [Unknown]
  - Herpes zoster [Recovered/Resolved]
  - Abasia [Unknown]

NARRATIVE: CASE EVENT DATE: 201411
